FAERS Safety Report 5206091-2 (Version None)
Quarter: 2007Q1

REPORT INFORMATION
  Report Type: 
  Country: None (occurrence: None)
  Receive Date: 20070111
  Receipt Date: 20070104
  Transmission Date: 20070707
  Serious: Yes (Hospitalization)
  Sender: FDA-Public Use
  Company Number: 2007SE00043

PATIENT
  Age: 94 Year
  Sex: Female

DRUGS (7)
  1. TENORMIN [Suspect]
     Indication: HYPERTENSION
     Route: 048
     Dates: end: 20051108
  2. LANACRIST [Suspect]
     Route: 048
     Dates: end: 20051108
  3. DICLOFENAC SODIUM [Suspect]
     Route: 048
     Dates: end: 20051108
  4. ACETAMINOPHEN [Concomitant]
     Route: 048
  5. ALLOPURINOL SODIUM [Concomitant]
     Route: 048
  6. FUROSEMIDE [Concomitant]
     Route: 048
  7. ASPIRIN [Concomitant]
     Route: 048

REACTIONS (3)
  - BRADYCARDIA [None]
  - POISONING [None]
  - RENAL FAILURE [None]
